FAERS Safety Report 4819171-8 (Version None)
Quarter: 2005Q4

REPORT INFORMATION
  Report Type: 
  Country: None (occurrence: None)
  Receive Date: 20051102
  Receipt Date: 20051102
  Transmission Date: 20060501
  Serious: Yes (Other)
  Sender: FDA-Public Use
  Company Number: None

PATIENT
  Age: 41 Year
  Sex: Female
  Weight: 81.6475 kg

DRUGS (1)
  1. EURO RADIANCE DENTAL WHITENING    35%     NORTEX SOLUTIONS [Suspect]
     Indication: TOOTH DISCOLOURATION

REACTIONS (2)
  - GINGIVAL DISCOLOURATION [None]
  - GINGIVAL PAIN [None]
